FAERS Safety Report 17237841 (Version 1)
Quarter: 2020Q1

REPORT INFORMATION
  Report Type: Other
  Country: US (occurrence: US)
  Receive Date: 20200106
  Receipt Date: 20200106
  Transmission Date: 20200409
  Serious: Yes (Life-Threatening, Hospitalization, Other)
  Sender: FDA-Public Use
  Company Number: US-C B FLEET CO INC-201912-US-004158

PATIENT
  Age: 64 Year
  Sex: Male

DRUGS (1)
  1. ACETAMINOPHEN. [Suspect]
     Active Substance: ACETAMINOPHEN
     Indication: PRODUCT USED FOR UNKNOWN INDICATION
     Dosage: DOSAGE UNKNOWN

REACTIONS (9)
  - Mucosal dryness [Recovered/Resolved]
  - Gastrointestinal haemorrhage [Recovered/Resolved]
  - Delirium [Recovered/Resolved]
  - Intestinal perforation [Recovered/Resolved]
  - Shock [Recovered/Resolved]
  - Overdose [None]
  - Mental status changes [Recovered/Resolved]
  - Methaemoglobinaemia [Recovered/Resolved]
  - Respiratory failure [Recovered/Resolved]
